FAERS Safety Report 19769768 (Version 2)
Quarter: 2021Q3

REPORT INFORMATION
  Report Type: Spontaneous
  Country: US (occurrence: US)
  Receive Date: 20210831
  Receipt Date: 20210928
  Transmission Date: 20211014
  Serious: Yes (Other)
  Sender: FDA-Public Use
  Company Number: US-MYLANLABS-2021M1056633

PATIENT
  Sex: Female
  Weight: 61 kg

DRUGS (2)
  1. NORETHINDRONE TABLETS, USP [Suspect]
     Active Substance: NORETHINDRONE
     Indication: PROGESTERONE DECREASED
     Dosage: 0.35 MILLIGRAM
     Route: 048
  2. NORETHINDRONE TABLETS, USP [Suspect]
     Active Substance: NORETHINDRONE
     Indication: HEAVY MENSTRUAL BLEEDING
     Dosage: UNK, QD
     Route: 048
     Dates: start: 20210713, end: 20210826

REACTIONS (6)
  - Diarrhoea [Not Recovered/Not Resolved]
  - Malnutrition [Not Recovered/Not Resolved]
  - Dehydration [Not Recovered/Not Resolved]
  - Nausea [Unknown]
  - Arthralgia [Unknown]
  - Rectal haemorrhage [Not Recovered/Not Resolved]
